FAERS Safety Report 5965330-0 (Version None)
Quarter: 2008Q4

REPORT INFORMATION
  Report Type: 
  Country: None (occurrence: None)
  Receive Date: 20081125
  Receipt Date: 20081113
  Transmission Date: 20090506
  Serious: Yes (Hospitalization)
  Sender: FDA-Public Use
  Company Number: BR-ROCHE-595493

PATIENT
  Sex: Female
  Weight: 64.3 kg

DRUGS (3)
  1. BONIVA [Suspect]
     Indication: OSTEOPOROSIS
     Route: 048
     Dates: start: 20061204
  2. CALCIUM CITRATE [Concomitant]
     Route: 048
     Dates: start: 20001130
  3. VITAMIN D [Concomitant]
     Route: 048
     Dates: start: 20001130

REACTIONS (5)
  - ABDOMINAL ABSCESS [None]
  - ABDOMINAL PAIN [None]
  - DIVERTICULAR PERFORATION [None]
  - DIVERTICULITIS [None]
  - PYREXIA [None]
